FAERS Safety Report 4658381-X (Version None)
Quarter: 2005Q2

REPORT INFORMATION
  Report Type: 
  Country: None (occurrence: None)
  Receive Date: 20050509
  Receipt Date: 20050419
  Transmission Date: 20051028
  Serious: Yes (Other)
  Sender: FDA-Public Use
  Company Number: USA050290579

PATIENT
  Age: 40 Year
  Sex: Female

DRUGS (8)
  1. ZYPREXA [Suspect]
     Indication: BIPOLAR DISORDER
     Dosage: 40 MG/1 DAY
     Route: 048
     Dates: start: 20000418
  2. XANAX               (ALPRAZOLAM DUM) [Concomitant]
  3. EFFEXOR [Concomitant]
  4. LIBRAX [Concomitant]
  5. DESYREL [Concomitant]
  6. AMBIEN [Concomitant]
  7. SEROQUEL [Concomitant]
  8. DULOXETINE [Concomitant]

REACTIONS (10)
  - DEPENDENCE [None]
  - DRUG EFFECT DECREASED [None]
  - FATIGUE [None]
  - INSOMNIA [None]
  - LOSS OF CONSCIOUSNESS [None]
  - MOVEMENT DISORDER [None]
  - NAUSEA [None]
  - PRESCRIBED OVERDOSE [None]
  - TREMOR [None]
  - VOMITING [None]
